FAERS Safety Report 11574352 (Version 1)
Quarter: 2015Q3

REPORT INFORMATION
  Report Type: Spontaneous
  Country: US (occurrence: None)
  Receive Date: 20150928
  Receipt Date: 20150928
  Transmission Date: 20151125
  Serious: No
  Sender: FDA-Public Use
  Company Number: None

PATIENT
  Age: 54 Year
  Sex: Male
  Weight: 79.38 kg

DRUGS (11)
  1. GABAPENTINE [Concomitant]
     Active Substance: GABAPENTIN
  2. SYNTHROID [Concomitant]
     Active Substance: LEVOTHYROXINE SODIUM
  3. FISH OIL [Concomitant]
     Active Substance: FISH OIL
  4. D3 [Concomitant]
     Active Substance: 25-HYDROXYCHOLECALCIFEROL, 5-TRANS-
  5. QUETIAPINE 25 MG [Suspect]
     Active Substance: QUETIAPINE
     Indication: ANGER
     Dosage: 1 PILL
     Route: 048
  6. QUETIAPINE 25 MG [Suspect]
     Active Substance: QUETIAPINE
     Indication: ANXIETY
     Dosage: 1 PILL
     Route: 048
  7. CLONAZEPAM. [Concomitant]
     Active Substance: CLONAZEPAM
  8. QUETIAPINE 25 MG [Suspect]
     Active Substance: QUETIAPINE
     Indication: DEPRESSION
     Dosage: 1 PILL
     Route: 048
  9. LAMOTRIGINE. [Concomitant]
     Active Substance: LAMOTRIGINE
  10. METHYLPHENIDATE. [Concomitant]
     Active Substance: METHYLPHENIDATE
  11. QUETIAPINE [Concomitant]
     Active Substance: QUETIAPINE

REACTIONS (2)
  - Acne [None]
  - Folliculitis [None]

NARRATIVE: CASE EVENT DATE: 20150726
